FAERS Safety Report 9418752 (Version 2)
Quarter: 2013Q4

REPORT INFORMATION
  Report Type: Spontaneous
  Country: US (occurrence: US)
  Receive Date: 20130725
  Receipt Date: 20131111
  Transmission Date: 20140711
  Serious: No
  Sender: FDA-Public Use
  Company Number: US-PFIZER INC-2013214240

PATIENT
  Age: 75 Year
  Sex: Male

DRUGS (3)
  1. INLYTA [Suspect]
     Indication: RENAL CELL CARCINOMA
     Dosage: 5 MG, 2X/DAY (1 TABLET EVERY 12 HOURS)
     Route: 048
     Dates: start: 20130423
  2. FUROSEMIDE [Concomitant]
     Indication: OEDEMA
     Dosage: UNK
  3. FUROSEMIDE [Concomitant]
     Dosage: AS NEEDED

REACTIONS (1)
  - Dysphonia [Unknown]
